FAERS Safety Report 4631200-3 (Version None)
Quarter: 2005Q2

REPORT INFORMATION
  Report Type: 
  Country: None (occurrence: None)
  Receive Date: 20050407
  Receipt Date: 20050407
  Transmission Date: 20051028
  Serious: Yes (Other)
  Sender: FDA-Public Use
  Company Number: None

PATIENT
  Sex: Male
  Weight: 111.8 kg

DRUGS (4)
  1. EZETIMIBE 10 MG [Suspect]
     Dosage: 10 MG QHS ORAL
     Route: 048
  2. LISINOPRIL [Concomitant]
  3. ALENDRONATE SODIUM [Concomitant]
  4. SILDENAFIL [Concomitant]

REACTIONS (1)
  - MYALGIA [None]
